FAERS Safety Report 20740816 (Version 3)
Quarter: 2022Q2

REPORT INFORMATION
  Report Type: Spontaneous
  Country: JP (occurrence: JP)
  Receive Date: 20220422
  Receipt Date: 20220609
  Transmission Date: 20220720
  Serious: Yes (Other)
  Sender: FDA-Public Use
  Company Number: JP-TAKEDA-2022TUS019232

PATIENT
  Age: 16 Year
  Sex: Female

DRUGS (9)
  1. INTUNIV [Suspect]
     Active Substance: GUANFACINE HYDROCHLORIDE
     Indication: Attention deficit hyperactivity disorder
     Dosage: 1 MILLIGRAM, QD
     Route: 048
     Dates: start: 20211220, end: 20220116
  2. INTUNIV [Suspect]
     Active Substance: GUANFACINE HYDROCHLORIDE
     Dosage: 3 MILLIGRAM, QD
     Route: 048
     Dates: start: 20220117, end: 20220224
  3. INTUNIV [Suspect]
     Active Substance: GUANFACINE HYDROCHLORIDE
     Dosage: 84 MILLIGRAM, QD
     Route: 048
  4. TEGRETOL [Concomitant]
     Active Substance: CARBAMAZEPINE
     Indication: Epilepsy
     Dosage: 0.2 GRAM, QD
     Route: 048
  5. TEGRETOL [Concomitant]
     Active Substance: CARBAMAZEPINE
     Indication: Prophylaxis
  6. VALPROATE SODIUM [Concomitant]
     Active Substance: VALPROATE SODIUM
     Indication: Prophylaxis
     Dosage: 1.9 GRAM, QD
     Route: 048
  7. VALPROATE SODIUM [Concomitant]
     Active Substance: VALPROATE SODIUM
     Indication: Epilepsy
  8. SULTHIAME [Concomitant]
     Active Substance: SULTHIAME
     Indication: Epilepsy
     Dosage: 50 MILLIGRAM, QD
     Route: 048
  9. SULTHIAME [Concomitant]
     Active Substance: SULTHIAME
     Indication: Prophylaxis

REACTIONS (5)
  - Bradycardia [Recovered/Resolved]
  - Atrioventricular block [Recovered/Resolved]
  - Altered state of consciousness [Recovered/Resolved]
  - Urinary incontinence [Recovered/Resolved]
  - Intentional overdose [Unknown]

NARRATIVE: CASE EVENT DATE: 20220224
